FAERS Safety Report 13158488 (Version 1)
Quarter: 2017Q1

REPORT INFORMATION
  Report Type: Report from Study
  Country: CA (occurrence: CA)
  Receive Date: 20170127
  Receipt Date: 20170127
  Transmission Date: 20170428
  Serious: Yes (Hospitalization)
  Sender: FDA-Public Use
  Company Number: CA-TAKEDA-2017TUS001651

PATIENT
  Age: 31 Year
  Sex: Female

DRUGS (3)
  1. VEDOLIZUMAB [Suspect]
     Active Substance: VEDOLIZUMAB
     Indication: COLITIS ULCERATIVE
     Dosage: 300 MG, UNK
     Route: 042
     Dates: start: 20170104
  2. IMURAN [Concomitant]
     Active Substance: AZATHIOPRINE
     Dosage: 50 MG, QD
  3. BETNESOL                           /00008502/ [Concomitant]
     Active Substance: BETAMETHASONE
     Dosage: UNK

REACTIONS (2)
  - Urinary tract infection [Recovered/Resolved]
  - Myalgia [Recovered/Resolved]

NARRATIVE: CASE EVENT DATE: 20170105
